FAERS Safety Report 8208623-9 (Version None)
Quarter: 2012Q1

REPORT INFORMATION
  Report Type: 
  Country: None (occurrence: None)
  Receive Date: 20120314
  Receipt Date: 20120309
  Transmission Date: 20120608
  Serious: No
  Sender: FDA-Public Use
  Company Number: US-PFIZER INC-2012063681

PATIENT
  Sex: Male
  Weight: 113 kg

DRUGS (3)
  1. POTASSIUM PENICILLIN G [Suspect]
     Dosage: UNK
  2. ADVAIR DISKUS 100/50 [Concomitant]
     Indication: EMPHYSEMA
     Dosage: 100/50 UG, 2X/DAY
  3. METOPROLOL [Concomitant]
     Indication: CARDIAC DISORDER
     Dosage: 25 MG, DAILY

REACTIONS (1)
  - HYPERSENSITIVITY [None]
